FAERS Safety Report 6187441-X (Version None)
Quarter: 2009Q2

REPORT INFORMATION
  Report Type: 
  Country: None (occurrence: None)
  Receive Date: 20090512
  Receipt Date: 20090508
  Transmission Date: 20091009
  Serious: Yes (Other)
  Sender: FDA-Public Use
  Company Number: US-MERCK-0903USA01882

PATIENT
  Age: 10 Year
  Sex: Male
  Weight: 86 kg

DRUGS (1)
  1. JANUMET [Suspect]
     Indication: TYPE 1 DIABETES MELLITUS
     Route: 048
     Dates: start: 20090219, end: 20090221

REACTIONS (5)
  - FLUSHING [None]
  - OFF LABEL USE [None]
  - RASH PRURITIC [None]
  - THROAT TIGHTNESS [None]
  - URTICARIA [None]
